FAERS Safety Report 12285441 (Version 2)
Quarter: 2016Q2

REPORT INFORMATION
  Report Type: Report from Study
  Country: US (occurrence: US)
  Receive Date: 20160420
  Receipt Date: 20160511
  Transmission Date: 20160815
  Serious: No
  Sender: FDA-Public Use
  Company Number: US-AMGEN-USASL2016049088

PATIENT
  Age: 59 Year
  Sex: Female

DRUGS (1)
  1. ENBREL [Suspect]
     Active Substance: ETANERCEPT
     Indication: RHEUMATOID ARTHRITIS
     Dosage: 50 MG, QWK
     Route: 065
     Dates: start: 20160405

REACTIONS (15)
  - Hypoaesthesia [Unknown]
  - Discomfort [Unknown]
  - Cough [Not Recovered/Not Resolved]
  - Generalised erythema [Unknown]
  - Pollakiuria [Unknown]
  - Dry mouth [Not Recovered/Not Resolved]
  - Swollen tongue [Unknown]
  - Dyspepsia [Unknown]
  - Feeling abnormal [Recovered/Resolved]
  - Injection site reaction [Unknown]
  - Paraesthesia [Unknown]
  - Glossodynia [Unknown]
  - Dehydration [Recovered/Resolved]
  - Injection site erythema [Recovered/Resolved]
  - Injection site discolouration [Unknown]

NARRATIVE: CASE EVENT DATE: 201604
